FAERS Safety Report 9180892 (Version 1)
Quarter: 2013Q1

REPORT INFORMATION
  Report Type: Spontaneous
  Country: PT (occurrence: PT)
  Receive Date: 20130322
  Receipt Date: 20130322
  Transmission Date: 20140127
  Serious: Yes (Hospitalization, Disabling)
  Sender: FDA-Public Use
  Company Number: PT-009507513-1303PRT005247

PATIENT
  Age: 40 Year
  Sex: Male

DRUGS (2)
  1. PEGINTRON [Suspect]
     Indication: HEPATITIS C
  2. PEGASYS [Suspect]

REACTIONS (2)
  - Pain in jaw [Unknown]
  - Musculoskeletal pain [Unknown]
